FAERS Safety Report 7285340-3 (Version None)
Quarter: 2011Q1

REPORT INFORMATION
  Report Type: 
  Country: None (occurrence: None)
  Receive Date: 20110201
  Receipt Date: 20110119
  Transmission Date: 20110831
  Serious: Yes (Death, Hospitalization)
  Sender: FDA-Public Use
  Company Number: WAES 1010USA02690

PATIENT
  Age: 67 Year
  Sex: Male
  Weight: 120.2032 kg

DRUGS (14)
  1. PLAVIX [Concomitant]
  2. IMDUR [Concomitant]
  3. K-DUR [Concomitant]
  4. ASPIRIN [Concomitant]
  5. TOPROL-XL [Concomitant]
  6. PLACEBO [Suspect]
     Indication: ACUTE CORONARY SYNDROME
     Dosage: /PO
     Route: 048
     Dates: start: 20070525, end: 20101012
  7. FLOMAX [Concomitant]
  8. HYDROCHLOROTHIAZIDE [Concomitant]
  9. LISINOPRIL [Concomitant]
  10. METFORMIN HCL [Concomitant]
  11. OMEGA-3 MARINE TRIGLYCERIDES [Concomitant]
  12. ZOCOR [Suspect]
     Indication: ACUTE CORONARY SYNDROME
     Dosage: /PO
     Route: 048
     Dates: start: 20070525, end: 20101012
  13. PLACEBO [Suspect]
     Indication: ACUTE CORONARY SYNDROME
     Dosage: /PO
     Route: 048
     Dates: start: 20070525, end: 20101012
  14. AVODART [Concomitant]

REACTIONS (2)
  - ADENOCARCINOMA PANCREAS [None]
  - BILE DUCT OBSTRUCTION [None]
